FAERS Safety Report 23844356 (Version 5)
Quarter: 2024Q4

REPORT INFORMATION
  Report Type: Spontaneous
  Country: JP (occurrence: JP)
  Receive Date: 20240510
  Receipt Date: 20241122
  Transmission Date: 20250115
  Serious: Yes (Hospitalization, Other)
  Sender: APELLIS PHARMACEUTICALS
  Company Number: JP-BIOVITRUM-2024-JP-001217

PATIENT

DRUGS (1)
  1. PEGCETACOPLAN [Suspect]
     Active Substance: PEGCETACOPLAN
     Indication: Paroxysmal nocturnal haemoglobinuria
     Dosage: 1080 MG TWICE A WEEK
     Route: 058
     Dates: start: 20231204

REACTIONS (17)
  - COVID-19 [Recovered/Resolved]
  - Pneumonia [Recovering/Resolving]
  - Delirium [Recovered/Resolved]
  - Oedema peripheral [Not Recovered/Not Resolved]
  - Condition aggravated [Not Recovered/Not Resolved]
  - Malaise [Recovered/Resolved]
  - Anaemia [Recovering/Resolving]
  - Rhinorrhoea [Recovering/Resolving]
  - Productive cough [Not Recovered/Not Resolved]
  - Dysphonia [Not Recovered/Not Resolved]
  - Pollakiuria [Recovered/Resolved]
  - Gait disturbance [Not Recovered/Not Resolved]
  - Reticulocyte count decreased [Recovered/Resolved]
  - Blood pressure systolic decreased [Recovering/Resolving]
  - Fatigue [Unknown]
  - General physical health deterioration [Unknown]
  - Melaena [Unknown]

NARRATIVE: CASE EVENT DATE: 20240101
